FAERS Safety Report 21242092 (Version 2)
Quarter: 2022Q3

REPORT INFORMATION
  Report Type: Spontaneous
  Country: KR (occurrence: KR)
  Receive Date: 20220823
  Receipt Date: 20220906
  Transmission Date: 20221026
  Serious: Yes (Other)
  Sender: FDA-Public Use
  Company Number: KR-Indoco-000339

PATIENT
  Age: 75 Year
  Sex: Female

DRUGS (1)
  1. DORZOLAMIDE\TIMOLOL [Suspect]
     Active Substance: DORZOLAMIDE\TIMOLOL
     Indication: Intraocular pressure increased
     Dosage: DORZOLAMIDE/TIMOLOL FIXED COMBINATION (DTFC), EYE DROPS

REACTIONS (1)
  - Corneal decompensation [Recovered/Resolved]
